FAERS Safety Report 9038781 (Version 1)
Quarter: 2013Q1

REPORT INFORMATION
  Report Type: Spontaneous
  Country: US (occurrence: None)
  Receive Date: 20130123
  Receipt Date: 20130123
  Transmission Date: 20140127
  Serious: Yes (Life-Threatening)
  Sender: FDA-Public Use
  Company Number: None

PATIENT
  Sex: 0

DRUGS (2)
  1. DENOSUMAB [Suspect]
     Indication: OSTEOPENIA
     Dosage: 60 MG  Q 6 MONTHS  SQ
     Route: 058
     Dates: start: 20130109, end: 20130109
  2. XGEVA [Concomitant]

REACTIONS (6)
  - Hypocalcaemia [None]
  - Paraesthesia [None]
  - Hypoaesthesia [None]
  - Tachycardia [None]
  - Hypotension [None]
  - Electrocardiogram QT prolonged [None]
